FAERS Safety Report 4930342-2 (Version None)
Quarter: 2006Q1

REPORT INFORMATION
  Report Type: 
  Country: None (occurrence: None)
  Receive Date: 20060302
  Receipt Date: 20060227
  Transmission Date: 20060701
  Serious: Yes (Life-Threatening, Other)
  Sender: FDA-Public Use
  Company Number: NSADSS2001037001

PATIENT
  Age: 76 Year
  Sex: Female

DRUGS (4)
  1. REMICADE [Suspect]
     Route: 041
  2. REMICADE [Suspect]
     Indication: RHEUMATOID ARTHRITIS
     Dosage: TOTAL OF 6 INFUSIONS OF UNKNOWN DOSAGE
     Route: 041
  3. METHOTREXATE [Concomitant]
  4. STEROIDS, NOS [Concomitant]

REACTIONS (1)
  - DISSEMINATED TUBERCULOSIS [None]
